FAERS Safety Report 8762470 (Version 2)
Quarter: 2012Q4

REPORT INFORMATION
  Report Type: Report from Study
  Country: JP (occurrence: JP)
  Receive Date: 20120830
  Receipt Date: 20120921
  Transmission Date: 20130627
  Serious: Yes (Other)
  Sender: FDA-Public Use
  Company Number: JP-CELGENEUS-087-21880-11083301

PATIENT
  Age: 40 Year
  Sex: Female

DRUGS (19)
  1. REVLIMID [Suspect]
     Indication: MULTIPLE MYELOMA
     Dosage: 25 Milligram
     Route: 048
     Dates: start: 20101116, end: 20101207
  2. REVLIMID [Suspect]
     Dosage: 25 Milligram
     Route: 048
     Dates: start: 20101222, end: 20110111
  3. DECADRON [Concomitant]
     Indication: MULTIPLE MYELOMA
     Dosage: 20 Milligram
     Route: 048
     Dates: start: 20101117, end: 20101117
  4. DECADRON [Concomitant]
     Dosage: 20 Milligram
     Route: 048
     Dates: start: 20101123, end: 20101123
  5. DEXAMETHASONE [Concomitant]
     Indication: MULTIPLE MYELOMA
     Dosage: 40 Milligram
     Route: 048
     Dates: start: 20101222, end: 20110111
  6. MARZULENE-S [Concomitant]
     Indication: PROPHYLAXIS
     Dosage: 1.5 Gram
     Route: 048
     Dates: start: 20100630
  7. JUVELA [Concomitant]
     Indication: PROPHYLAXIS
     Dosage: 300 Milligram
     Route: 048
     Dates: start: 20100630, end: 20110620
  8. JUVELA [Concomitant]
     Dosage: 300 Milligram
     Route: 048
  9. VITAMEDIN [Concomitant]
     Indication: PROPHYLAXIS
     Dosage: 100 Milligram
     Route: 048
     Dates: start: 20100630, end: 20110620
  10. VITAMEDIN [Concomitant]
     Dosage: 100 Milligram
     Route: 048
  11. OMEPRAL [Concomitant]
     Indication: PROPHYLAXIS
     Dosage: 20 Milligram
     Route: 048
     Dates: start: 20100630
  12. VICCLOX [Concomitant]
     Indication: PROPHYLAXIS
     Dosage: 400 Milligram
     Route: 048
     Dates: start: 20100630
  13. ITRIZOLE [Concomitant]
     Indication: PROPHYLAXIS
     Dosage: 200mg (20ml)
     Route: 048
     Dates: start: 20100714
  14. URSO [Concomitant]
     Indication: TRANSAMINASES INCREASED
     Dosage: 600 Milligram
     Route: 048
     Dates: start: 20100903
  15. DAIPHEN [Concomitant]
     Indication: PROPHYLAXIS
     Dosage: 1.1429 Tablet
     Route: 048
     Dates: start: 20100711
  16. GLYCYRON [Concomitant]
     Indication: TRANSAMINASES INCREASED
     Dosage: 6 Tablet
     Route: 048
     Dates: start: 20101027, end: 20101228
  17. GLYCYRON [Concomitant]
     Dosage: 6 Tablet
     Route: 048
  18. GLUCONSAN K [Concomitant]
     Indication: HYPOKALAEMIA
     Dosage: 6 Tablet
     Route: 048
     Dates: start: 20101022, end: 20101214
  19. CRAVIT [Concomitant]
     Indication: PROPHYLAXIS
     Dosage: 500 Milligram
     Route: 048

REACTIONS (7)
  - Neutropenia [Recovering/Resolving]
  - Human chorionic gonadotropin increased [Unknown]
  - Hepatic function abnormal [Recovered/Resolved]
  - Platelet count decreased [Recovered/Resolved]
  - C-reactive protein increased [Recovered/Resolved]
  - Thrombocytopenia [Recovering/Resolving]
  - Leukopenia [Recovering/Resolving]
